FAERS Safety Report 7029768-5 (Version None)
Quarter: 2010Q4

REPORT INFORMATION
  Report Type: 
  Country: None (occurrence: None)
  Receive Date: 20101001
  Receipt Date: 20100924
  Transmission Date: 20110411
  Serious: Yes (Hospitalization)
  Sender: FDA-Public Use
  Company Number: 7018586

PATIENT
  Age: 59 Year
  Sex: Female

DRUGS (5)
  1. THYROZOL 20 MG (THIAMAZOLE) (20 MG, COATED TABLET) (THIAMAZOLE) [Suspect]
     Indication: BASEDOW'S DISEASE
     Dosage: 1 DF (1 DF, 1 IN 1 D), ORAL
     Route: 048
     Dates: start: 20100701, end: 20100813
  2. LEVOTHYROXINE SODIUM [Suspect]
     Indication: PRODUCT USED FOR UNKNOWN INDICATION
     Dosage: 1 DF (1 DF, 1 IN 1 D), ORAL
     Route: 048
     Dates: end: 20100813
  3. CLARITHROMYCIN [Suspect]
     Indication: PRODUCT USED FOR UNKNOWN INDICATION
     Dosage: ORAL
     Route: 048
     Dates: start: 20100806
  4. PIVALONE (TIXOCORTOL PIVALATE) (1 PERCENT, NASAL SPRAY, SUSPENSION) (T [Suspect]
     Indication: PRODUCT USED FOR UNKNOWN INDICATION
     Dosage: NASAL
     Route: 045
     Dates: start: 20100806
  5. DOLIPRANE (PARACETAMOL) (PARACETAMOL) [Suspect]
     Indication: PRODUCT USED FOR UNKNOWN INDICATION
     Dosage: ORAL
     Route: 048
     Dates: start: 20100806

REACTIONS (7)
  - ABDOMINAL PAIN [None]
  - AGRANULOCYTOSIS [None]
  - DIARRHOEA [None]
  - ESCHERICHIA URINARY TRACT INFECTION [None]
  - PHARYNGITIS STREPTOCOCCAL [None]
  - PYELONEPHRITIS ACUTE [None]
  - PYREXIA [None]
